FAERS Safety Report 7538331-9 (Version None)
Quarter: 2011Q2

REPORT INFORMATION
  Report Type: 
  Country: None (occurrence: None)
  Receive Date: 20110609
  Receipt Date: 20070313
  Transmission Date: 20111010
  Serious: Yes (Death, Other)
  Sender: FDA-Public Use
  Company Number: PHMT2007CA00496

PATIENT
  Sex: Male

DRUGS (2)
  1. SANDOSTATIN [Suspect]
     Dosage: 750 UG, QID
     Route: 058
     Dates: start: 20070110
  2. SANDOSTATIN LAR [Suspect]
     Indication: CARCINOID TUMOUR
     Dosage: 60 MG, BIW
     Dates: start: 20010701, end: 20061220

REACTIONS (7)
  - DEATH [None]
  - HAEMATOCHEZIA [None]
  - BEDRIDDEN [None]
  - HYPERSOMNIA [None]
  - CONDITION AGGRAVATED [None]
  - PAIN [None]
  - DIARRHOEA [None]
